FAERS Safety Report 5789251-1 (Version None)
Quarter: 2008Q2

REPORT INFORMATION
  Report Type: 
  Country: None (occurrence: None)
  Receive Date: 20080623
  Receipt Date: 20080619
  Transmission Date: 20081010
  Serious: Yes (Death, Hospitalization)
  Sender: FDA-Public Use
  Company Number: 2007SP025306

PATIENT
  Age: 49 Year
  Sex: Male

DRUGS (9)
  1. PEGETRON (PEGINTERFERON ALFA-2B W/RIBAVIRIN) (PEGYLATED INTERFERON ALF [Suspect]
     Indication: HEPATITIS C VIRUS
     Dosage: 100 MG; QW; SC; 35 DF; QW; PO
     Route: 048
     Dates: end: 20071205
  2. PEGETRON (PEGINTERFERON ALFA-2B W/RIBAVIRIN) (PEGYLATED INTERFERON ALF [Suspect]
     Indication: HEPATITIS C VIRUS
     Dosage: 100 MG; QW; SC; 35 DF; QW; PO
     Route: 048
     Dates: end: 20071205
  3. NEURONTIN (CON.) [Concomitant]
  4. DILANTIN (CON.) [Concomitant]
  5. SEROQUEL (CON.) [Concomitant]
  6. VENTOLIN (CON.) [Concomitant]
  7. FLOVENT (CON.) [Concomitant]
  8. QUETIAPINE (CON.) [Concomitant]
  9. NAPROSYN (CON.) [Concomitant]

REACTIONS (5)
  - CEREBRAL INFARCTION [None]
  - COMA [None]
  - DRUG SCREEN POSITIVE [None]
  - DRUG TOXICITY [None]
  - GENERAL PHYSICAL HEALTH DETERIORATION [None]
